FAERS Safety Report 4368921-6 (Version None)
Quarter: 2004Q2

REPORT INFORMATION
  Report Type: 
  Country: None (occurrence: None)
  Receive Date: 20040525
  Receipt Date: 20040512
  Transmission Date: 20050107
  Serious: Yes (Other)
  Sender: FDA-Public Use
  Company Number: 2004019113

PATIENT
  Sex: Female

DRUGS (4)
  1. GEODON [Suspect]
     Indication: ILL-DEFINED DISORDER
     Dosage: 120 MG
  2. VALPROATE SODIUM [Concomitant]
  3. OXCARBAZEPINE (OXCARBAZEPINE) [Concomitant]
  4. VENLAFAXINE HCL [Concomitant]

REACTIONS (2)
  - ATTENTION-SEEKING BEHAVIOUR [None]
  - CONVULSION [None]
